FAERS Safety Report 14356754 (Version 1)
Quarter: 2018Q1

REPORT INFORMATION
  Report Type: Spontaneous
  Country: US (occurrence: US)
  Receive Date: 20180104
  Receipt Date: 20180104
  Transmission Date: 20180509
  Serious: Yes (Hospitalization)
  Sender: FDA-Public Use
  Company Number: None

PATIENT
  Age: 82 Year
  Sex: Male

DRUGS (13)
  1. PROGRAF [Suspect]
     Active Substance: TACROLIMUS\TACROLIMUS ANHYDROUS
     Indication: RENAL TRANSPLANT
     Route: 048
     Dates: start: 20141022
  2. GENTAMICIN. [Concomitant]
     Active Substance: GENTAMICIN
  3. VORICONAZOLE. [Concomitant]
     Active Substance: VORICONAZOLE
  4. TACROLIMUS. [Concomitant]
     Active Substance: TACROLIMUS
  5. ACCU-CHEK [Concomitant]
  6. AMOX/K CLAV [Concomitant]
     Active Substance: AMOXICILLIN\CLAVULANATE POTASSIUM
  7. GENTAK [Concomitant]
     Active Substance: GENTAMICIN SULFATE
  8. ATORVASTATIN [Concomitant]
     Active Substance: ATORVASTATIN
  9. BUMETANIDE. [Concomitant]
     Active Substance: BUMETANIDE
  10. TORSEMIDE. [Concomitant]
     Active Substance: TORSEMIDE
  11. INSULIN SYRG [Concomitant]
  12. TAMSULOSIN [Concomitant]
     Active Substance: TAMSULOSIN
  13. HUMULIN NOS [Concomitant]
     Active Substance: INSULIN HUMAN

REACTIONS (1)
  - Hospitalisation [None]
